FAERS Safety Report 8848757 (Version 4)
Quarter: 2013Q2

REPORT INFORMATION
  Report Type: Report from Study
  Country: FR (occurrence: FR)
  Receive Date: 20121018
  Receipt Date: 20130401
  Transmission Date: 20140414
  Serious: Yes (Hospitalization)
  Sender: FDA-Public Use
  Company Number: FR-ROCHE-658438

PATIENT
  Age: 60 Year
  Sex: Female
  Weight: 55 kg

DRUGS (15)
  1. RITUXIMAB [Suspect]
     Indication: LYMPHOMA
     Route: 042
  2. RITUXIMAB [Suspect]
     Route: 042
  3. RITUXIMAB [Suspect]
     Dosage: 4 CYCLES
     Route: 042
     Dates: start: 20070820, end: 20070910
  4. RITUXIMAB [Suspect]
     Dosage: MAINTENANCE TREATMENT
     Route: 042
  5. RITUXIMAB [Suspect]
     Route: 042
     Dates: start: 20080114, end: 20080114
  6. RITUXIMAB [Suspect]
     Route: 042
     Dates: start: 20080214, end: 20080326
  7. RITUXIMAB [Suspect]
     Route: 042
     Dates: start: 20080430, end: 20080507
  8. RITUXIMAB [Suspect]
     Route: 042
     Dates: start: 20090115, end: 20090205
  9. RITUXIMAB [Suspect]
     Route: 042
     Dates: start: 20090406, end: 20100308
  10. RITUXIMAB [Suspect]
     Route: 042
     Dates: start: 201003, end: 20110404
  11. ZEVALIN [Concomitant]
     Indication: B-CELL LYMPHOMA
     Route: 042
     Dates: start: 20080507, end: 20080519
  12. ARACYTINE [Concomitant]
     Indication: B-CELL LYMPHOMA
     Route: 042
     Dates: start: 20080515, end: 20080518
  13. BICNU [Concomitant]
     Indication: B-CELL LYMPHOMA
     Route: 042
     Dates: start: 20080514, end: 20080514
  14. VEPESIDE [Concomitant]
     Indication: B-CELL LYMPHOMA
     Route: 042
     Dates: start: 20080515, end: 20080518
  15. ALKERAN [Concomitant]
     Indication: B-CELL LYMPHOMA
     Route: 042
     Dates: start: 20080519, end: 20080519

REACTIONS (4)
  - Urinary tract infection [Recovered/Resolved]
  - Ureaplasma infection [Recovered/Resolved]
  - Urinary tract infection [Recovered/Resolved]
  - Reiter^s syndrome [Recovered/Resolved]
